FAERS Safety Report 5145449-7 (Version None)
Quarter: 2006Q4

REPORT INFORMATION
  Report Type: 
  Country: None (occurrence: None)
  Receive Date: 20061101
  Receipt Date: 20061019
  Transmission Date: 20070319
  Serious: Yes (Hospitalization, Other)
  Sender: FDA-Public Use
  Company Number: HQWYE342220OCT06

PATIENT
  Age: 18 Year
  Sex: Female

DRUGS (2)
  1. PREMARIN [Suspect]
     Indication: HYPOGONADISM
     Dosage: SEE IMAGE
  2. UNSPECIFIED THYROID MEDICATION [Concomitant]

REACTIONS (2)
  - ANAEMIA [None]
  - ENDOMETRIAL HYPERPLASIA [None]
